FAERS Safety Report 7265331-9 (Version None)
Quarter: 2011Q1

REPORT INFORMATION
  Report Type: 
  Country: None (occurrence: None)
  Receive Date: 20110131
  Receipt Date: 20110119
  Transmission Date: 20110831
  Serious: Yes (Life-Threatening, Hospitalization)
  Sender: FDA-Public Use
  Company Number: CH-SANOFI-AVENTIS-2011SA004371

PATIENT
  Age: 64 Year
  Sex: Male
  Weight: 86 kg

DRUGS (24)
  1. ELOXATIN [Suspect]
     Route: 042
     Dates: start: 20101215, end: 20101215
  2. AVASTIN [Suspect]
     Route: 042
     Dates: start: 20101215, end: 20101215
  3. ECOFENAC [Suspect]
     Route: 048
     Dates: start: 20101215, end: 20101218
  4. GLUCOPHAGE [Suspect]
     Route: 048
     Dates: start: 20101218
  5. PERFALGAN [Concomitant]
     Indication: PROPHYLAXIS
     Route: 041
     Dates: start: 20100128, end: 20101215
  6. CLEMASTINE FUMARATE [Concomitant]
     Indication: PROPHYLAXIS
     Route: 040
     Dates: start: 20100128, end: 20101215
  7. GLIMEPIRIDE [Concomitant]
     Route: 048
  8. ELOXATIN [Suspect]
     Route: 042
     Dates: start: 20100128, end: 20100128
  9. NOVALGIN [Suspect]
  10. LYRICA [Concomitant]
     Route: 048
  11. INSULATARD [Concomitant]
     Route: 058
  12. PRIMPERAN TAB [Concomitant]
     Indication: VOMITING
     Route: 048
  13. XELODA [Suspect]
     Route: 048
     Dates: start: 20100128, end: 20101218
  14. MIDAZOLAM [Concomitant]
     Indication: INSOMNIA
  15. FENOFIBRATE [Concomitant]
     Route: 048
  16. MOTILIUM [Concomitant]
     Indication: VOMITING
     Route: 048
  17. AVASTIN [Suspect]
     Route: 042
     Dates: start: 20100128, end: 20100128
  18. ALOXI [Concomitant]
     Indication: PROPHYLAXIS
     Route: 040
     Dates: start: 20100128, end: 20101215
  19. DEXAMETHASONE SODIUM PHOSPHATE [Concomitant]
     Indication: PROPHYLAXIS
     Route: 041
     Dates: start: 20100128, end: 20101215
  20. EMEND [Concomitant]
     Indication: PROPHYLAXIS
     Route: 048
     Dates: start: 20100128, end: 20101215
  21. FRAXIPARIN [Concomitant]
     Indication: PROPHYLAXIS
     Route: 058
     Dates: start: 20090401
  22. ZOMETA [Concomitant]
     Indication: BONE NEOPLASM
     Route: 041
     Dates: end: 20101122
  23. ESOMEPRAZOLE [Concomitant]
     Route: 048
  24. ZOLPIDEM [Concomitant]
     Indication: INSOMNIA

REACTIONS (6)
  - LACTIC ACIDOSIS [None]
  - BLOOD AMYLASE INCREASED [None]
  - HAEMOLYTIC ANAEMIA [None]
  - HEPATIC ENZYME INCREASED [None]
  - RENAL FAILURE ACUTE [None]
  - LIPASE INCREASED [None]
